FAERS Safety Report 26058757 (Version 1)
Quarter: 2025Q4

REPORT INFORMATION
  Report Type: Spontaneous
  Country: US (occurrence: None)
  Receive Date: 20251117
  Receipt Date: 20251117
  Transmission Date: 20260118
  Serious: Yes (Life-Threatening, Hospitalization, Disabling)
  Sender: FDA-CTU
  Company Number: None

PATIENT
  Age: 49 Year
  Sex: Female
  Weight: 97 kg

DRUGS (3)
  1. ZEPBOUND [Suspect]
     Active Substance: TIRZEPATIDE
     Dosage: OTHER FREQUENCY : WEEKLY;?
     Route: 058
  2. Propranolol ER 80mg daily [Concomitant]
  3. norethindrone-ethinyl estradiol 1.5-30 mg-mcg table daily [Concomitant]

REACTIONS (6)
  - Ischaemic stroke [None]
  - Carotid artery occlusion [None]
  - Deep vein thrombosis [None]
  - Blood folate decreased [None]
  - Vitamin B12 decreased [None]
  - Blood thyroid stimulating hormone increased [None]

NARRATIVE: CASE EVENT DATE: 20251109
